FAERS Safety Report 14719254 (Version 1)
Quarter: 2018Q2

REPORT INFORMATION
  Report Type: Other
  Country: AT (occurrence: AT)
  Receive Date: 20180405
  Receipt Date: 20180405
  Transmission Date: 20180711
  Serious: Yes (Hospitalization)
  Sender: FDA-Public Use
  Company Number: AT-AVONDALE PHARMACEUTICALS, LLC-2045131

PATIENT
  Age: 22 Year
  Sex: Female

DRUGS (3)
  1. HYLAKTIV [Suspect]
     Active Substance: PROBIOTICS NOS\VITAMINS
     Route: 065
  2. CLINDAMYCIN. [Concomitant]
     Active Substance: CLINDAMYCIN
     Route: 065
  3. NIACOR [Suspect]
     Active Substance: NIACIN
     Indication: PERFORMANCE ENHANCING PRODUCT USE
     Route: 048

REACTIONS (9)
  - Product use in unapproved indication [Unknown]
  - Liver transplant [None]
  - Hepatic congestion [None]
  - Hepatotoxicity [Recovered/Resolved]
  - Drug abuse [Recovered/Resolved]
  - Hepatic necrosis [None]
  - Intentional overdose [None]
  - Acute hepatic failure [Recovered/Resolved]
  - Overdose [Recovered/Resolved]
